APPROVED DRUG PRODUCT: METHYLTESTOSTERONE
Active Ingredient: METHYLTESTOSTERONE
Strength: 5MG
Dosage Form/Route: TABLET;BUCCAL, SUBLINGUAL
Application: A083836 | Product #001
Applicant: PRIVATE FORMULATIONS INC
Approved: Approved Prior to Jan 1, 1982 | RLD: No | RS: No | Type: DISCN